FAERS Safety Report 10734132 (Version 8)
Quarter: 2015Q2

REPORT INFORMATION
  Report Type: Report from Study
  Country: US (occurrence: US)
  Receive Date: 20150123
  Receipt Date: 20150519
  Transmission Date: 20150821
  Serious: Yes (Hospitalization)
  Sender: FDA-Public Use
  Company Number: US-009507513-1501USA008175

PATIENT
  Age: 73 Year
  Sex: Male
  Weight: 100.6 kg

DRUGS (13)
  1. AMLODIPINE [Concomitant]
     Active Substance: AMLODIPINE BESYLATE
     Indication: HYPERTENSION
     Dosage: 10 MG, QD, FORMULATION: PILL
     Route: 048
     Dates: start: 20140521, end: 20150211
  2. GLIPIZIDE. [Concomitant]
     Active Substance: GLIPIZIDE
     Indication: DIABETES MELLITUS
     Dosage: 5 MG, BID
     Route: 048
     Dates: start: 20140521
  3. IPILIMUMAB [Suspect]
     Active Substance: IPILIMUMAB
     Dosage: 1 MG/KG, Q3W
     Route: 042
     Dates: start: 20141230, end: 20141230
  4. PRINIVIL [Concomitant]
     Active Substance: LISINOPRIL
     Indication: HYPERTENSION
     Dosage: 10 MG, QD
     Route: 048
     Dates: start: 20140521
  5. IPILIMUMAB [Suspect]
     Active Substance: IPILIMUMAB
     Indication: NON-SMALL CELL LUNG CANCER
     Dosage: 1 MG/KG, Q3W
     Route: 042
     Dates: start: 20141119, end: 20141210
  6. BUDESONIDE (+) FORMOTEROL FUMARATE [Concomitant]
     Active Substance: BUDESONIDE\FORMOTEROL FUMARATE
     Indication: CHRONIC OBSTRUCTIVE PULMONARY DISEASE
     Dosage: 2 PUFF, BID
     Route: 055
     Dates: start: 20140521, end: 20150121
  7. ALBUTEROL SULFATE. [Concomitant]
     Active Substance: ALBUTEROL SULFATE
     Indication: CHRONIC OBSTRUCTIVE PULMONARY DISEASE
     Dosage: UNK, PRN, STRENGTH 2 PUFF, FORMULATION INHALANT
     Route: 055
     Dates: start: 20140521
  8. CRESTOR [Concomitant]
     Active Substance: ROSUVASTATIN CALCIUM
     Indication: HYPERLIPIDAEMIA
     Dosage: 20 MG, QD
     Route: 048
     Dates: start: 20140521
  9. ATIVAN [Concomitant]
     Active Substance: LORAZEPAM
     Indication: PROPHYLAXIS OF NAUSEA AND VOMITING
     Dosage: TOTAL DAILY DOSE 1 TABLET, PRN
     Route: 048
     Dates: start: 20140522
  10. PEMBROLIZUMAB. [Suspect]
     Active Substance: PEMBROLIZUMAB
     Dosage: 2 MG/KG, Q3W
     Route: 042
     Dates: start: 20141230, end: 20141230
  11. PEMBROLIZUMAB. [Suspect]
     Active Substance: PEMBROLIZUMAB
     Indication: NON-SMALL CELL LUNG CANCER
     Dosage: 2 MG/KG, Q3W
     Route: 042
     Dates: start: 20141119, end: 20141210
  12. ACTOPLUS MET [Concomitant]
     Active Substance: METFORMIN HYDROCHLORIDE\PIOGLITAZONE HYDROCHLORIDE
     Indication: TYPE 2 DIABETES MELLITUS
     Dosage: 1 TABLET, BID
     Route: 048
     Dates: start: 20141023
  13. ZOFRAN [Concomitant]
     Active Substance: ONDANSETRON HYDROCHLORIDE
     Indication: PROPHYLAXIS OF NAUSEA AND VOMITING
     Dosage: UNK, PRN
     Route: 048
     Dates: start: 20140321, end: 20150121

REACTIONS (2)
  - Myocarditis [Not Recovered/Not Resolved]
  - Myasthenia gravis [Recovered/Resolved]

NARRATIVE: CASE EVENT DATE: 20150111
